FAERS Safety Report 19856321 (Version 2)
Quarter: 2021Q4

REPORT INFORMATION
  Report Type: Spontaneous
  Country: US (occurrence: US)
  Receive Date: 20210920
  Receipt Date: 20211213
  Transmission Date: 20220303
  Serious: Yes (Hospitalization)
  Sender: FDA-Public Use
  Company Number: US-GW PHARMA-202108USGW04178

PATIENT

DRUGS (6)
  1. EPIDIOLEX [Suspect]
     Active Substance: CANNABIDIOL
     Indication: Lennox-Gastaut syndrome
     Dosage: 15MG/KG/DAY, 500 MILLIGRAM, QD (175 MILLIGRAM IN THE AM, 150 MILLIGRAM IN MID DAY, 175 MILLIGRAM IN
     Route: 048
     Dates: start: 201906
  2. EPIDIOLEX [Suspect]
     Active Substance: CANNABIDIOL
     Indication: Epilepsy
  3. EPIDIOLEX [Suspect]
     Active Substance: CANNABIDIOL
     Indication: Status epilepticus
  4. DEPAKOTE [Concomitant]
     Active Substance: DIVALPROEX SODIUM
     Indication: Product used for unknown indication
     Dosage: 2 DOSAGE FORM, QD (1 AT LUNCH AND 1 AT BEDTIME)
     Route: 065
  5. LAMICTAL [Concomitant]
     Active Substance: LAMOTRIGINE
     Indication: Product used for unknown indication
     Dosage: 3 DOSAGE FORM, TID
     Route: 065
  6. KEPPRA [Concomitant]
     Active Substance: LEVETIRACETAM
     Indication: Product used for unknown indication
     Dosage: 5 MILLILITER, QID
     Route: 065

REACTIONS (7)
  - Petit mal epilepsy [Recovered/Resolved]
  - Tonic convulsion [Recovered/Resolved]
  - Seizure [Recovered/Resolved]
  - Urinary tract infection [Unknown]
  - Seizure [Unknown]
  - Seizure [Unknown]
  - Off label use [Unknown]

NARRATIVE: CASE EVENT DATE: 20210816
